FAERS Safety Report 5919157-6 (Version None)
Quarter: 2008Q4

REPORT INFORMATION
  Report Type: 
  Country: None (occurrence: None)
  Receive Date: 20081015
  Receipt Date: 20081008
  Transmission Date: 20090506
  Serious: Yes (Other)
  Sender: FDA-Public Use
  Company Number: US-AVENTIS-200816793US

PATIENT
  Sex: Female

DRUGS (5)
  1. LANTUS [Suspect]
     Dosage: DOSE: 65-70 U
     Route: 058
  2. APIDRA [Concomitant]
     Dosage: DOSE: UNK
  3. LISINOPRIL [Concomitant]
     Dosage: DOSE: UNK
  4. LOVASTATIN [Concomitant]
     Dosage: DOSE: UNK
  5. FOLIC ACID [Concomitant]
     Dosage: DOSE: UNK

REACTIONS (4)
  - EYE HAEMORRHAGE [None]
  - MUSCLE INJURY [None]
  - PARAESTHESIA [None]
  - RETINAL DISORDER [None]
